FAERS Safety Report 8026746 (Version 6)
Quarter: 2012Q4

REPORT INFORMATION
  Report Type: Report from Study
  Country: IN (occurrence: IN)
  Receive Date: 20110708
  Receipt Date: 20121217
  Transmission Date: 20130627
  Serious: Yes (Death, Hospitalization)
  Sender: FDA-Public Use
  Company Number: IN-GLAXOSMITHKLINE-Z0010227B

PATIENT
  Age: 69 Year
  Sex: Male
  Weight: 58 kg

DRUGS (4)
  1. OFATUMUMAB [Suspect]
     Indication: CHRONIC LYMPHOCYTIC LEUKAEMIA
     Route: 042
     Dates: start: 20101223
  2. FLUDARABINE [Suspect]
     Indication: CHRONIC LYMPHOCYTIC LEUKAEMIA
     Route: 042
     Dates: start: 20101223
  3. CYCLOPHOSPHAMIDE [Suspect]
     Indication: CHRONIC LYMPHOCYTIC LEUKAEMIA
     Route: 042
     Dates: start: 20101223
  4. PANTOPRAZOLE [Concomitant]
     Indication: HYPERCHLORHYDRIA
     Dosage: 40MG Per day
     Route: 048
     Dates: start: 20110707, end: 20110727

REACTIONS (3)
  - Hepatic encephalopathy [Not Recovered/Not Resolved]
  - Sepsis [Fatal]
  - Hepatitis B [Not Recovered/Not Resolved]
